FAERS Safety Report 18425541 (Version 9)
Quarter: 2022Q3

REPORT INFORMATION
  Report Type: Spontaneous
  Country: US (occurrence: US)
  Receive Date: 20201026
  Receipt Date: 20220922
  Transmission Date: 20221026
  Serious: Yes (Death, Hospitalization, Other)
  Sender: FDA-Public Use
  Company Number: US-PFIZER INC-2020413636

PATIENT
  Age: 66 Year
  Sex: Male
  Weight: 82 kg

DRUGS (8)
  1. BRAFTOVI [Suspect]
     Active Substance: ENCORAFENIB
     Indication: Hairy cell leukaemia recurrent
     Dosage: 300 MG
  2. BRAFTOVI [Suspect]
     Active Substance: ENCORAFENIB
     Dosage: 450 MG, 1X/DAY, (SIX 75MG CAPSULES BY MOUTH ONCE DAILY)
     Route: 048
     Dates: start: 20200813, end: 20200831
  3. BRAFTOVI [Suspect]
     Active Substance: ENCORAFENIB
     Dosage: 450 MG, DAILY (ENCORAFENIB 75MG - 6 TABLETS DAILY)
     Route: 048
     Dates: start: 20200820, end: 20200830
  4. MEKTOVI [Suspect]
     Active Substance: BINIMETINIB
     Indication: Hairy cell leukaemia recurrent
     Dosage: UNK
     Dates: start: 20200813, end: 20200831
  5. MEKTOVI [Suspect]
     Active Substance: BINIMETINIB
     Dosage: 45 MG, 2X/DAY (3 TABLETS TWICE A DAY)
     Route: 048
     Dates: start: 20200820, end: 20200830
  6. VITAMIN B12 [Concomitant]
     Active Substance: CYANOCOBALAMIN
     Dosage: 1000 UG
     Dates: start: 2018
  7. VITAMIN C [Concomitant]
     Active Substance: ASCORBIC ACID
     Dosage: 1000 MG
     Dates: start: 2018
  8. VITAMIN D NOS [Concomitant]
     Active Substance: VITAMIN D NOS
     Dosage: UNK
     Dates: start: 2018

REACTIONS (14)
  - Colitis [Fatal]
  - Abdominal pain [Unknown]
  - Haemoperitoneum [Recovered/Resolved]
  - Nausea [Unknown]
  - Vomiting [Unknown]
  - Constipation [Unknown]
  - Intestinal obstruction [Recovered/Resolved]
  - Pneumoperitoneum [Unknown]
  - Acute respiratory failure [Unknown]
  - Acute kidney injury [Recovered/Resolved]
  - Off label use [Unknown]
  - Pleural effusion [Unknown]
  - Blood creatine phosphokinase increased [Recovered/Resolved]
  - Fatigue [Unknown]

NARRATIVE: CASE EVENT DATE: 20200801
